FAERS Safety Report 6981941-8 (Version None)
Quarter: 2010Q3

REPORT INFORMATION
  Report Type: 
  Country: None (occurrence: None)
  Receive Date: 20100914
  Receipt Date: 20091026
  Transmission Date: 20110219
  Serious: No
  Sender: FDA-Public Use
  Company Number: US-PFIZER INC-2009289874

PATIENT
  Sex: Female

DRUGS (3)
  1. LYRICA [Suspect]
     Indication: POLYMYALGIA RHEUMATICA
     Dosage: UNK
  2. METHOTREXATE [Concomitant]
     Dosage: UNK
  3. REMERON [Concomitant]
     Dosage: UNK

REACTIONS (9)
  - CONFUSIONAL STATE [None]
  - DIZZINESS [None]
  - DYSKINESIA [None]
  - DYSSTASIA [None]
  - FEAR [None]
  - INSOMNIA [None]
  - MOBILITY DECREASED [None]
  - NERVOUSNESS [None]
  - RESTLESSNESS [None]
